FAERS Safety Report 15824618 (Version 1)
Quarter: 2019Q1

REPORT INFORMATION
  Report Type: Spontaneous
  Country: DE (occurrence: DE)
  Receive Date: 20190115
  Receipt Date: 20190115
  Transmission Date: 20190417
  Serious: Yes (Other)
  Sender: FDA-Public Use
  Company Number: DE-HTU-2018DE018148

PATIENT
  Age: 65 Year
  Sex: Female
  Weight: 61 kg

DRUGS (8)
  1. PANTOPRAZOLE SODIUM. [Suspect]
     Active Substance: PANTOPRAZOLE SODIUM
     Indication: PRODUCT USED FOR UNKNOWN INDICATION
     Dosage: RECEIVED BEFORE CHEMOTHERAPY
     Route: 065
  2. UROMITEXAN [Suspect]
     Active Substance: MESNA
     Indication: PRODUCT USED FOR UNKNOWN INDICATION
     Dosage: 400 MILLIGRAM
     Route: 042
     Dates: start: 20180928
  3. UROMITEXAN [Suspect]
     Active Substance: MESNA
     Indication: PRODUCT USED FOR UNKNOWN INDICATION
     Dosage: 4 AND 8 HOURS AFTER CHEMOTHERAPY
     Route: 065
  4. ENDOXAN                            /00021101/ [Suspect]
     Active Substance: CYCLOPHOSPHAMIDE
     Indication: BREAST CANCER
     Dosage: FOUR CYCLES 500MG/QM, INFUSION TIME OF 1.5 HOURS
     Route: 042
     Dates: start: 20180928, end: 20181130
  5. NEULASTA [Suspect]
     Active Substance: PEGFILGRASTIM
     Indication: PRODUCT USED FOR UNKNOWN INDICATION
     Dosage: RECEIVED AFTER 27 HOURS OF CHEMOTHERAPY
     Route: 058
     Dates: start: 201809
  6. AKYNZEO [Suspect]
     Active Substance: NETUPITANT\PALONOSETRON HYDROCHLORIDE
     Indication: PRODUCT USED FOR UNKNOWN INDICATION
     Dosage: RECEIVED AFTER 27 HOURS OF CHEMOTHERAPY
     Route: 065
     Dates: start: 201809
  7. EPIRUBICIN [Suspect]
     Active Substance: EPIRUBICIN
     Indication: BREAST CANCER
     Dosage: FOUR CYCLES, INFUSION TIME OF 1.5 HOURS
     Route: 042
     Dates: start: 20180928, end: 20181130
  8. DEXAMETHASONE. [Suspect]
     Active Substance: DEXAMETHASONE
     Indication: PRODUCT USED FOR UNKNOWN INDICATION
     Route: 042
     Dates: start: 20180928

REACTIONS (17)
  - Dysgeusia [Unknown]
  - Dyspnoea [Unknown]
  - Nausea [Unknown]
  - Fatigue [Unknown]
  - Fluid intake reduced [Unknown]
  - Weight decreased [Unknown]
  - Decreased appetite [Unknown]
  - Cardiovascular disorder [Unknown]
  - Tachycardia [Unknown]
  - Hypotension [Unknown]
  - Bone pain [Unknown]
  - Inappropriate schedule of product administration [Unknown]
  - Asthenia [Unknown]
  - Mobility decreased [Unknown]
  - Mucosal inflammation [Unknown]
  - Mental disorder [Unknown]
  - Abdominal discomfort [Not Recovered/Not Resolved]

NARRATIVE: CASE EVENT DATE: 201809
